FAERS Safety Report 6208959-7 (Version None)
Quarter: 2009Q2

REPORT INFORMATION
  Report Type: 
  Country: None (occurrence: None)
  Receive Date: 20090522
  Receipt Date: 20090124
  Transmission Date: 20091009
  Serious: No
  Sender: FDA-Public Use
  Company Number: 8041749

PATIENT
  Age: 52 Year
  Sex: Female
  Weight: 81.8 kg

DRUGS (5)
  1. CIMZIA [Suspect]
     Indication: CROHN'S DISEASE
     Dosage: 400 MG SC
     Route: 058
     Dates: start: 20080618
  2. LISINOPRIL [Concomitant]
  3. PROTONIX [Concomitant]
  4. WELLBUTRIN [Concomitant]
  5. ESTROGEN [Concomitant]

REACTIONS (2)
  - ARTHRALGIA [None]
  - CROHN'S DISEASE [None]
